FAERS Safety Report 7405427-1 (Version None)
Quarter: 2011Q2

REPORT INFORMATION
  Report Type: 
  Country: None (occurrence: None)
  Receive Date: 20110401
  Receipt Date: 20110318
  Transmission Date: 20111010
  Serious: Yes (Hospitalization)
  Sender: FDA-Public Use
  Company Number: 2011P1005064

PATIENT
  Age: 79 Year
  Sex: Female
  Weight: 56.6996 kg

DRUGS (5)
  1. FENTANYL PATCH 25 MCG/HR (NO PREF. NAME) [Suspect]
     Indication: ARTHRALGIA
     Dosage: Q4D; TDER, Q3D; TDER
     Route: 062
     Dates: start: 20080101
  2. ZOCOR [Concomitant]
  3. ATARAX [Concomitant]
  4. LEVOXYL [Concomitant]
  5. TYLENOL W/ CODEINE [Concomitant]

REACTIONS (2)
  - BREAKTHROUGH PAIN [None]
  - DRUG EFFECT DECREASED [None]
